FAERS Safety Report 7120950-5 (Version None)
Quarter: 2010Q4

REPORT INFORMATION
  Report Type: 
  Country: None (occurrence: None)
  Receive Date: 20101124
  Receipt Date: 20101115
  Transmission Date: 20110411
  Serious: Yes (Hospitalization)
  Sender: FDA-Public Use
  Company Number: IE-MEDIMMUNE-MEDI-0011829

PATIENT
  Sex: Female

DRUGS (5)
  1. SYNAGIS [Suspect]
     Indication: HEART DISEASE CONGENITAL
     Route: 030
     Dates: start: 20101027, end: 20101027
  2. FUROSEMIDE [Concomitant]
  3. DIGOXIN [Concomitant]
  4. ACETYLSALICYLIC ACID [Concomitant]
  5. SPIRONOLACTONE [Concomitant]

REACTIONS (1)
  - CARDIOMYOPATHY [None]
